FAERS Safety Report 10067942 (Version 3)
Quarter: 2014Q2

REPORT INFORMATION
  Report Type: Report from Study
  Country: US (occurrence: US)
  Receive Date: 20140409
  Receipt Date: 20140411
  Transmission Date: 20141212
  Serious: Yes (Life-Threatening, Hospitalization)
  Sender: FDA-Public Use
  Company Number: US-MERCK-1404USA000060

PATIENT
  Age: 46 Year
  Sex: Female
  Weight: 110 kg

DRUGS (6)
  1. BLINDED VORINOSTAT [Suspect]
     Indication: ACUTE MYELOID LEUKAEMIA
     Dosage: DAYS 1-3
     Route: 048
     Dates: start: 20140319
  2. BLINDED VORINOSTAT [Suspect]
     Dosage: DAY 1-3
     Route: 048
     Dates: start: 20130717
  3. IDARUBICIN [Suspect]
     Indication: ACUTE MYELOID LEUKAEMIA
     Dosage: ON DAYS 4-6
     Route: 042
     Dates: start: 20140322
  4. IDARUBICIN [Suspect]
     Dosage: ON DAYS 4-7
     Route: 042
     Dates: start: 20130720
  5. CYTARABINE [Suspect]
     Indication: ACUTE MYELOID LEUKAEMIA
     Dosage: ON DAYS 4-6
     Route: 042
     Dates: start: 20140322
  6. CYTARABINE [Suspect]
     Dosage: ON DAYS 4-7
     Route: 042
     Dates: start: 20130720

REACTIONS (4)
  - Neutrophil count decreased [Recovered/Resolved]
  - White blood cell count decreased [Recovered/Resolved]
  - Headache [Recovered/Resolved]
  - Upper respiratory tract infection [Recovered/Resolved]
